FAERS Safety Report 22701374 (Version 9)
Quarter: 2024Q1

REPORT INFORMATION
  Report Type: Report from Study
  Country: PT (occurrence: PT)
  Receive Date: 20230713
  Receipt Date: 20240116
  Transmission Date: 20240409
  Serious: Yes (Hospitalization, Other)
  Sender: FDA-Public Use
  Company Number: PT-ABBVIE-5324807

PATIENT
  Age: 83 Year
  Sex: Female

DRUGS (10)
  1. CARBIDOPA\LEVODOPA [Suspect]
     Active Substance: CARBIDOPA\LEVODOPA
     Indication: Parkinson^s disease
     Dosage: 20 MG + 5 MG, MORN:7CC;MAINT:1.4CC/H;EXTRA:1CC
     Route: 050
     Dates: start: 20211214
  2. CARBIDOPA\LEVODOPA [Suspect]
     Active Substance: CARBIDOPA\LEVODOPA
     Dosage: 20 MG + 5 MG, MORN:7.3CC;MAINT:2.1CC/H;EXTRA:1.8CC
     Route: 050
     Dates: start: 20230711, end: 20230713
  3. CARBIDOPA\LEVODOPA [Suspect]
     Active Substance: CARBIDOPA\LEVODOPA
     Dosage: 20 MG + 5 MG, MORN:7.3CC;MAINT:2.3CC/H;EXTRA:1.8CC
     Route: 050
     Dates: start: 202305, end: 20230711
  4. CARBIDOPA\LEVODOPA [Suspect]
     Active Substance: CARBIDOPA\LEVODOPA
     Dosage: 20 MG + 5 MG?MORN:6.5CC;MAINT:1.7CC/H;EXTRA:1.8CC
     Route: 050
     Dates: start: 20230713, end: 20230720
  5. CARBIDOPA\LEVODOPA [Suspect]
     Active Substance: CARBIDOPA\LEVODOPA
     Dosage: 20 MG + 5 MG?FREQUENCY TEXT: MORN:6.5CC;MAINT:1.9CC/H;EXTRA:1.8CC
     Route: 050
     Dates: start: 20230720, end: 20230803
  6. CARBIDOPA\LEVODOPA [Suspect]
     Active Substance: CARBIDOPA\LEVODOPA
     Dosage: FREQUENCY TEXT: MORN:6.5CC;MAINT:1.9CC/H;EXTRA:2CC ?20 MG + 5 MG
     Route: 050
     Dates: start: 20230803, end: 20230822
  7. CARBIDOPA\LEVODOPA [Suspect]
     Active Substance: CARBIDOPA\LEVODOPA
     Dosage: 20 MG + 5 MG; FREQUENCY TEXT: MORN:6.5CC;MAINT:2.1CC/H;EXTRA:2.5CC
     Route: 050
     Dates: start: 20230822, end: 20230914
  8. CARBIDOPA\LEVODOPA [Suspect]
     Active Substance: CARBIDOPA\LEVODOPA
     Dosage: 20 MG + 5 MG?FREQUENCY TEXT: MORN:6.5CC;MAINT:2.2CC/H;EXTRA:UNK
     Route: 050
     Dates: start: 20230914
  9. QUETIAPINE [Concomitant]
     Active Substance: QUETIAPINE
     Indication: Insomnia
     Dosage: 1 TABLET ?FORM STRENGTH 25 MILLIGRAM, ?START DATE TEXT: BEFORE DUODOPA
     Route: 048
  10. CLONAZEPAM [Concomitant]
     Active Substance: CLONAZEPAM
     Indication: Insomnia
     Dosage: 1 TABLET, ?FORM STRENGTH: 2 MILLIGRAM, ?START DATE TEXT: BEFORE DUODOPA
     Route: 048

REACTIONS (10)
  - Femoral neck fracture [Recovered/Resolved]
  - Fall [Recovered/Resolved]
  - Dyskinesia [Recovered/Resolved]
  - Pain in extremity [Recovered/Resolved]
  - Hypotension [Recovered/Resolved]
  - Anaemia [Recovered/Resolved]
  - Procedural haemorrhage [Recovered/Resolved]
  - Musculoskeletal stiffness [Recovered/Resolved]
  - Pain [Recovered/Resolved]
  - Gait disturbance [Recovering/Resolving]

NARRATIVE: CASE EVENT DATE: 20230701
